FAERS Safety Report 11374967 (Version 1)
Quarter: 2015Q3

REPORT INFORMATION
  Report Type: Report from Study
  Country: GB (occurrence: GB)
  Receive Date: 20150813
  Receipt Date: 20150813
  Transmission Date: 20151125
  Serious: Yes (Hospitalization)
  Sender: FDA-Public Use
  Company Number: GB-ABBVIE-15K-167-1442001-00

PATIENT
  Age: 68 Year
  Sex: Male

DRUGS (1)
  1. HUMIRA [Suspect]
     Active Substance: ADALIMUMAB
     Indication: RHEUMATOID ARTHRITIS
     Route: 058
     Dates: start: 20070205, end: 20131012

REACTIONS (8)
  - Traumatic intracranial haemorrhage [Unknown]
  - Spinal fracture [Unknown]
  - Fall [Unknown]
  - Rib fracture [Unknown]
  - Lower respiratory tract infection [Unknown]
  - Scrotal ulcer [Unknown]
  - Craniocerebral injury [Unknown]
  - Multiple fractures [Unknown]

NARRATIVE: CASE EVENT DATE: 20131012
